FAERS Safety Report 4695630-6 (Version None)
Quarter: 2005Q2

REPORT INFORMATION
  Report Type: 
  Country: None (occurrence: None)
  Receive Date: 20050621
  Receipt Date: 20050609
  Transmission Date: 20051028
  Serious: Yes (Hospitalization)
  Sender: FDA-Public Use
  Company Number: US-JNJFOC-20050603042

PATIENT
  Age: 32 Year
  Sex: Male

DRUGS (5)
  1. RISPERDAL CONSTA [Suspect]
     Indication: SCHIZOPHRENIA
     Route: 030
  2. RISPERDAL [Suspect]
     Route: 049
  3. RISPERDAL [Suspect]
     Indication: SCHIZOPHRENIA
     Route: 049
  4. COGENTIN [Concomitant]
     Indication: SCHIZOPHRENIA
     Route: 049
  5. ATIVAN [Concomitant]
     Indication: AGITATION
     Route: 049

REACTIONS (5)
  - AGGRESSION [None]
  - AGITATION [None]
  - IRRITABILITY [None]
  - RESTLESSNESS [None]
  - SUICIDAL IDEATION [None]
